FAERS Safety Report 24211511 (Version 1)
Quarter: 2024Q3

REPORT INFORMATION
  Report Type: Spontaneous
  Country: CN (occurrence: CN)
  Receive Date: 20240814
  Receipt Date: 20240814
  Transmission Date: 20241017
  Serious: Yes (Other)
  Sender: SANOFI AVENTIS
  Company Number: CN-SA-SAC20240814000291

PATIENT
  Age: 89 Year
  Sex: Male
  Weight: 75 kg

DRUGS (7)
  1. CLOPIDOGREL BISULFATE [Suspect]
     Active Substance: CLOPIDOGREL BISULFATE
     Indication: Platelet disorder
     Dosage: 75 MG, QD
     Route: 048
     Dates: start: 20240718, end: 20240731
  2. ASPIRIN [Suspect]
     Active Substance: ASPIRIN
     Indication: Platelet disorder
     Dosage: 100 MG, QD
     Route: 048
     Dates: start: 20240718, end: 20240731
  3. ATORVASTATIN CALCIUM [Suspect]
     Active Substance: ATORVASTATIN CALCIUM
     Indication: Lipids abnormal
     Dosage: 20 MG, QD
     Route: 048
     Dates: start: 20240718, end: 20240724
  4. FUROSEMIDE [Suspect]
     Active Substance: FUROSEMIDE
     Indication: Polyuria
     Dosage: 20 MG, QD
     Route: 048
     Dates: start: 20240718, end: 20240731
  5. RABEPRAZOLE SODIUM [Suspect]
     Active Substance: RABEPRAZOLE SODIUM
     Indication: Gastrointestinal mucosal disorder
     Dosage: 20 MG, QD
     Route: 048
     Dates: start: 20240718, end: 20240731
  6. SPIRONOLACTONE [Suspect]
     Active Substance: SPIRONOLACTONE
     Indication: Polyuria
     Dosage: 20 MG, QD
     Route: 048
     Dates: start: 20240718, end: 20240731
  7. SACUBITRIL\VALSARTAN [Concomitant]
     Active Substance: SACUBITRIL\VALSARTAN
     Indication: Hypertension
     Dosage: 100 MG, QD
     Route: 048
     Dates: start: 20240718, end: 20240731

REACTIONS (1)
  - Transaminases increased [Recovering/Resolving]

NARRATIVE: CASE EVENT DATE: 20240724
